APPROVED DRUG PRODUCT: TEMOZOLOMIDE
Active Ingredient: TEMOZOLOMIDE
Strength: 250MG
Dosage Form/Route: CAPSULE;ORAL
Application: A213328 | Product #006
Applicant: NIVAGEN PHARMACEUTICALS INC
Approved: Nov 23, 2021 | RLD: No | RS: No | Type: DISCN